FAERS Safety Report 22673772 (Version 7)
Quarter: 2023Q4

REPORT INFORMATION
  Report Type: Spontaneous
  Country: US (occurrence: US)
  Receive Date: 20230705
  Receipt Date: 20231218
  Transmission Date: 20240110
  Serious: Yes (Other)
  Sender: FDA-Public Use
  Company Number: US-BRISTOL-MYERS SQUIBB COMPANY-2023-093853

PATIENT
  Age: 84 Year
  Sex: Male

DRUGS (3)
  1. REVLIMID [Suspect]
     Active Substance: LENALIDOMIDE
     Indication: Plasma cell myeloma
     Dosage: 1 CAPSULE (15 MG TOTAL) BY MOUTH DAILY ON DAYS 1-21 OF EACH 28 DAY CYCLE. (3 WEEKS ON/1WEEK OFF)
     Route: 048
  2. REVLIMID [Suspect]
     Active Substance: LENALIDOMIDE
     Dosage: TAKE 1 CAPSULE BY MOUTH EVERY DAY ON DAYS 1-21 EVERY 28 DAYS
     Route: 048
     Dates: start: 20230620
  3. REVLIMID [Suspect]
     Active Substance: LENALIDOMIDE
     Dosage: TAKE 1 CAPSULE (5 MG TOTAL) BY MOUTH DAILY ON DAYS 1-21 OF EVERY 28 DAY CYCLE
     Route: 048

REACTIONS (4)
  - Myalgia [Not Recovered/Not Resolved]
  - Sensitive skin [Not Recovered/Not Resolved]
  - Rash [Recovered/Resolved]
  - Pain [Recovered/Resolved]

NARRATIVE: CASE EVENT DATE: 20230101
